FAERS Safety Report 11966727 (Version 1)
Quarter: 2016Q1

REPORT INFORMATION
  Report Type: Spontaneous
  Country: SG (occurrence: SG)
  Receive Date: 20160127
  Receipt Date: 20160127
  Transmission Date: 20160526
  Serious: Yes (Other)
  Sender: FDA-Public Use
  Company Number: SG-GILEAD-2016-0194362

PATIENT
  Age: 54 Year
  Sex: Male

DRUGS (4)
  1. TRUVADA [Suspect]
     Active Substance: EMTRICITABINE\TENOFOVIR DISOPROXIL FUMARATE
     Indication: HIV INFECTION
  2. COMBIVIR [Concomitant]
     Active Substance: LAMIVUDINE\ZIDOVUDINE
     Indication: HIV INFECTION
  3. TRUVADA [Suspect]
     Active Substance: EMTRICITABINE\TENOFOVIR DISOPROXIL FUMARATE
     Indication: HEPATITIS B
     Route: 065
  4. HEPSERA [Suspect]
     Active Substance: ADEFOVIR DIPIVOXIL
     Indication: HEPATITIS B
     Route: 065

REACTIONS (2)
  - Viral mutation identified [Unknown]
  - Viral load increased [Unknown]
